FAERS Safety Report 21800108 (Version 3)
Quarter: 2023Q1

REPORT INFORMATION
  Report Type: Report from Study
  Country: US (occurrence: US)
  Receive Date: 20221230
  Receipt Date: 20230215
  Transmission Date: 20230418
  Serious: Yes (Death, Hospitalization, Other)
  Sender: FDA-Public Use
  Company Number: US-TAKEDA-2022TUS100845

PATIENT
  Age: 63 Year
  Sex: Female

DRUGS (8)
  1. TEDUGLUTIDE [Suspect]
     Active Substance: TEDUGLUTIDE
     Indication: Short-bowel syndrome
     Dosage: 2.89 MILLIGRAM, QD
     Route: 058
     Dates: start: 20220729, end: 20230130
  2. TEDUGLUTIDE [Suspect]
     Active Substance: TEDUGLUTIDE
     Indication: Short-bowel syndrome
     Dosage: 2.89 MILLIGRAM, QD
     Route: 058
     Dates: start: 20220729, end: 20230130
  3. TEDUGLUTIDE [Suspect]
     Active Substance: TEDUGLUTIDE
     Indication: Short-bowel syndrome
     Dosage: 2.89 MILLIGRAM, QD
     Route: 058
     Dates: start: 20220729, end: 20230130
  4. TEDUGLUTIDE [Suspect]
     Active Substance: TEDUGLUTIDE
     Indication: Short-bowel syndrome
     Dosage: 2.89 MILLIGRAM, QD
     Route: 058
     Dates: start: 20220729, end: 20230130
  5. TEDUGLUTIDE [Suspect]
     Active Substance: TEDUGLUTIDE
     Dosage: 2.89 MILLIGRAM, QD
     Route: 058
     Dates: start: 20220729, end: 20230212
  6. TEDUGLUTIDE [Suspect]
     Active Substance: TEDUGLUTIDE
     Dosage: 2.89 MILLIGRAM, QD
     Route: 058
     Dates: start: 20220729, end: 20230212
  7. TEDUGLUTIDE [Suspect]
     Active Substance: TEDUGLUTIDE
     Dosage: 2.89 MILLIGRAM, QD
     Route: 058
     Dates: start: 20220729, end: 20230212
  8. TEDUGLUTIDE [Suspect]
     Active Substance: TEDUGLUTIDE
     Dosage: 2.89 MILLIGRAM, QD
     Route: 058
     Dates: start: 20220729, end: 20230212

REACTIONS (5)
  - Sepsis [Fatal]
  - Pneumonia [Fatal]
  - Benign pancreatic neoplasm [Unknown]
  - Urinary tract infection [Unknown]
  - Bile duct stenosis [Unknown]

NARRATIVE: CASE EVENT DATE: 20221129
